FAERS Safety Report 7720108-2 (Version None)
Quarter: 2011Q3

REPORT INFORMATION
  Report Type: 
  Country: None (occurrence: None)
  Receive Date: 20110824
  Receipt Date: 20110811
  Transmission Date: 20111222
  Serious: Yes (Disabling)
  Sender: FDA-Public Use
  Company Number: 2011MA012058

PATIENT
  Age: 33 Year
  Sex: Female

DRUGS (3)
  1. EPIRUBICIN HYDROCHLORIDE [Suspect]
     Indication: BREAST CANCER FEMALE
     Dates: start: 20091019
  2. TAXOTERE [Suspect]
     Indication: BREAST CANCER FEMALE
     Dates: start: 20090920
  3. CYCLOPHOSPHAMIDE [Concomitant]

REACTIONS (21)
  - HYPOAESTHESIA [None]
  - PAIN [None]
  - COORDINATION ABNORMAL [None]
  - BACK PAIN [None]
  - BURNING SENSATION [None]
  - MYALGIA [None]
  - CANDIDIASIS [None]
  - POSTURE ABNORMAL [None]
  - AREFLEXIA [None]
  - GAIT DISTURBANCE [None]
  - NERVE INJURY [None]
  - PARALYSIS [None]
  - PARAESTHESIA [None]
  - VIBRATORY SENSE INCREASED [None]
  - ACTIVITIES OF DAILY LIVING IMPAIRED [None]
  - SENSORY LOSS [None]
  - NAUSEA [None]
  - FATIGUE [None]
  - MUSCULAR WEAKNESS [None]
  - ARTHRALGIA [None]
  - DIARRHOEA [None]
